FAERS Safety Report 12052016 (Version 1)
Quarter: 2016Q1

REPORT INFORMATION
  Report Type: Spontaneous
  Country: US (occurrence: US)
  Receive Date: 20160209
  Receipt Date: 20160209
  Transmission Date: 20160526
  Serious: Yes (Other)
  Sender: FDA-Public Use
  Company Number: PHHY2016US015603

PATIENT
  Age: 41 Year
  Sex: Male

DRUGS (3)
  1. PREDNISONE. [Suspect]
     Active Substance: PREDNISONE
     Indication: RENAL TRANSPLANT
     Route: 065
  2. CICLOSPORIN [Suspect]
     Active Substance: CYCLOSPORINE
     Indication: RENAL TRANSPLANT
     Route: 065
  3. MYCOPHENOLIC ACID. [Suspect]
     Active Substance: MYCOPHENOLIC ACID
     Indication: RENAL TRANSPLANT
     Route: 065

REACTIONS (6)
  - Hyperkeratosis [Unknown]
  - Skin plaque [Unknown]
  - Squamous cell carcinoma of skin [Unknown]
  - Rash erythematous [Unknown]
  - Epidermodysplasia verruciformis [Unknown]
  - Skin lesion [Unknown]

NARRATIVE: CASE EVENT DATE: 2015
